FAERS Safety Report 6234608-8 (Version None)
Quarter: 2009Q2

REPORT INFORMATION
  Report Type: 
  Country: None (occurrence: None)
  Receive Date: 20090616
  Receipt Date: 20090616
  Transmission Date: 20091009
  Serious: Yes (Other)
  Sender: FDA-Public Use
  Company Number: None

PATIENT
  Age: 55 Year
  Sex: Male
  Weight: 92.0802 kg

DRUGS (2)
  1. THYROID TAB [Suspect]
     Indication: HYPOTHYROIDISM
     Dosage: 4 TABS -TOTAL- 3X DAY -1.5/1.5/1- SL
     Route: 060
     Dates: start: 20071201, end: 20090612
  2. THYROID TAB [Suspect]
     Dosage: SWITCHED TO: 4 TABS 1 X PO
     Route: 048

REACTIONS (2)
  - HYPOTHYROIDISM [None]
  - PRODUCT QUALITY ISSUE [None]
